FAERS Safety Report 6211492-X (Version None)
Quarter: 2009Q2

REPORT INFORMATION
  Report Type: 
  Country: None (occurrence: None)
  Receive Date: 20090528
  Receipt Date: 20090514
  Transmission Date: 20091009
  Serious: Yes (Death, Hospitalization)
  Sender: FDA-Public Use
  Company Number: 2009AL000334

PATIENT
  Age: 65 Year
  Sex: Male

DRUGS (17)
  1. DIGOXIN [Suspect]
     Dosage: 25MG, DAILY, PO
     Route: 048
  2. SPIRONOLACTONE [Concomitant]
  3. FUROSEMIDE [Concomitant]
  4. BUMETANIDE [Concomitant]
  5. POTASSIUM CHLORIDE [Concomitant]
  6. METOLAZONE [Concomitant]
  7. LEVOTHYROXINE [Concomitant]
  8. COUMADIN [Concomitant]
  9. PRIMIDONE [Concomitant]
  10. IRON [Concomitant]
  11. LANTUS [Concomitant]
  12. NOVOLOG [Concomitant]
  13. LOVENOX [Concomitant]
  14. RIFAXIMIN [Concomitant]
  15. VANCOMYCIN HCL [Concomitant]
  16. CEFOTAXIME [Concomitant]
  17. ASCORBIC ACID [Concomitant]

REACTIONS (25)
  - ASCITES [None]
  - ATAXIA [None]
  - ATRIAL FIBRILLATION [None]
  - BACK PAIN [None]
  - BALANCE DISORDER [None]
  - BREATH SOUNDS ABNORMAL [None]
  - CARDIAC FAILURE CONGESTIVE [None]
  - CARDIOACTIVE DRUG LEVEL INCREASED [None]
  - CHEST PAIN [None]
  - CONDITION AGGRAVATED [None]
  - EXCORIATION [None]
  - GAIT DISTURBANCE [None]
  - HEPATIC FAILURE [None]
  - HEPATORENAL SYNDROME [None]
  - HYPERKALAEMIA [None]
  - LETHARGY [None]
  - LEUKOCYTOSIS [None]
  - MUSCLE SPASMS [None]
  - NECK PAIN [None]
  - NEUROPATHY PERIPHERAL [None]
  - PERITONITIS [None]
  - PYREXIA [None]
  - RENAL FAILURE ACUTE [None]
  - VERTIGO [None]
  - WEIGHT DECREASED [None]
